FAERS Safety Report 9272055 (Version 3)
Quarter: 2013Q3

REPORT INFORMATION
  Report Type: Spontaneous
  Country: US (occurrence: US)
  Receive Date: 20130506
  Receipt Date: 20130923
  Transmission Date: 20140515
  Serious: Yes (Hospitalization)
  Sender: FDA-Public Use
  Company Number: US-VERTEX PHARMACEUTICALS INC-2013-005706

PATIENT
  Sex: Female

DRUGS (12)
  1. INCIVEK [Suspect]
     Indication: HEPATITIS C
     Dosage: 750 MG, TID
     Route: 048
     Dates: start: 20130419
  2. PEGASYS [Suspect]
     Indication: HEPATITIS C
     Dosage: 180 ?G, QW
     Route: 058
     Dates: start: 20130419
  3. RIBAVIRIN [Suspect]
     Indication: HEPATITIS C
     Dosage: 400 MG QAM, 600 MG QPM
     Route: 048
     Dates: start: 20130419
  4. RESTORIL [Concomitant]
  5. VALIUM [Concomitant]
  6. ALENDRONATE [Concomitant]
  7. LOPRESSOR [Concomitant]
  8. QVAR [Concomitant]
  9. LISINOPRIL [Concomitant]
  10. OMEPRAZOLE [Concomitant]
  11. NORCO [Concomitant]
  12. ACYCLOVIR [Concomitant]
     Indication: GENITAL HERPES
     Dosage: UNK, PRN

REACTIONS (4)
  - Renal failure acute [Recovered/Resolved]
  - Diarrhoea haemorrhagic [Unknown]
  - Fatigue [Unknown]
  - Nausea [Unknown]
